FAERS Safety Report 25599639 (Version 1)
Quarter: 2025Q3

REPORT INFORMATION
  Report Type: Spontaneous
  Country: EU (occurrence: EU)
  Receive Date: 20250724
  Receipt Date: 20250724
  Transmission Date: 20251020
  Serious: Yes (Hospitalization, Other)
  Sender: CHEPLAPHARM
  Company Number: None

PATIENT
  Age: 23 Year
  Sex: Female
  Weight: 68 kg

DRUGS (6)
  1. OLANZAPINE [Suspect]
     Active Substance: OLANZAPINE
     Indication: Psychotic disorder
     Dosage: DAILY DOSE: 5 MILLIGRAM
     Route: 048
     Dates: start: 20241217, end: 20250629
  2. CARIPRAZINE [Suspect]
     Active Substance: CARIPRAZINE
     Indication: Psychotic disorder
     Dosage: 0-1-0-0?DAILY DOSE: 3 MILLIGRAM
     Route: 048
     Dates: start: 20200219, end: 20240915
  3. CARIPRAZINE [Suspect]
     Active Substance: CARIPRAZINE
     Indication: Psychotic disorder
     Dosage: DAILY DOSE: 1.5 MILLIGRAM
     Route: 048
     Dates: start: 202409
  4. CARIPRAZINE [Suspect]
     Active Substance: CARIPRAZINE
     Indication: Psychotic disorder
     Dosage: DAILY DOSE: 6 MILLIGRAM
     Route: 048
     Dates: start: 20241223, end: 20250629
  5. ACETAMINOPHEN [Suspect]
     Active Substance: ACETAMINOPHEN
     Indication: Pain
     Dosage: 1000MG CADA 8 HORAS, TOMA 3 DOSIS
     Route: 048
     Dates: start: 202505, end: 20250629
  6. PROGESTERONE [Concomitant]
     Active Substance: PROGESTERONE
     Indication: Amenorrhoea
     Dosage: 100MG AL D?A.
     Route: 048
     Dates: start: 20240216

REACTIONS (6)
  - Hepatic cytolysis [Recovering/Resolving]
  - Abdominal pain upper [Recovered/Resolved]
  - Hyperbilirubinaemia [Recovering/Resolving]
  - Gallbladder enlargement [Recovering/Resolving]
  - Hepatic steatosis [Recovering/Resolving]
  - Cholelithiasis [Recovering/Resolving]

NARRATIVE: CASE EVENT DATE: 20250626
